FAERS Safety Report 12398307 (Version 1)
Quarter: 2016Q2

REPORT INFORMATION
  Report Type: Spontaneous
  Country: US (occurrence: None)
  Receive Date: 20160523
  Receipt Date: 20160523
  Transmission Date: 20160815
  Serious: Yes (Hospitalization)
  Sender: FDA-Public Use
  Company Number: None

PATIENT
  Age: 88 Year
  Sex: Male
  Weight: 45 kg

DRUGS (5)
  1. VANCOMYCIN [Concomitant]
     Active Substance: VANCOMYCIN
  2. ENOXAPARIN [Concomitant]
     Active Substance: ENOXAPARIN
  3. METOPROLOL. [Concomitant]
     Active Substance: METOPROLOL
  4. TIGECYCLINE. [Concomitant]
     Active Substance: TIGECYCLINE
  5. AVYCAZ [Suspect]
     Active Substance: AVIBACTAM SODIUM\CEFTAZIDIME
     Indication: CULTURE URINE POSITIVE
     Route: 042
     Dates: start: 20160510, end: 20160516

REACTIONS (1)
  - Liver function test increased [None]

NARRATIVE: CASE EVENT DATE: 20160515
